FAERS Safety Report 8939876 (Version 1)
Quarter: 2012Q4

REPORT INFORMATION
  Report Type: 
  Country: US (occurrence: US)
  Receive Date: 20121203
  Receipt Date: 20121203
  Transmission Date: 20130627
  Serious: No
  Sender: FDA-Public Use
  Company Number: US-009507513-1211USA011855

PATIENT
  Age: 63 Year
  Sex: Female
  Weight: 87.75 kg

DRUGS (6)
  1. VICTRELIS [Suspect]
     Dosage: 4 DF, tid every 7-9 hours
     Route: 048
     Dates: start: 201210
  2. PEGASYS [Suspect]
     Dosage: PROCLICK
     Route: 058
  3. ADVIL [Concomitant]
     Dosage: 200 mg, UNK
     Route: 048
  4. RIBAPAK [Suspect]
     Dosage: PAK 1200 dose unknown
     Route: 048
  5. IMODIUM ADVANCED [Concomitant]
     Route: 048
  6. HYDROCHLOROTHIAZIDE (+) TRIAMTERENE [Concomitant]
     Dosage: 25-50 milligrams
     Route: 048

REACTIONS (5)
  - Influenza like illness [Unknown]
  - Muscular weakness [Unknown]
  - Dysgeusia [Unknown]
  - Fatigue [Unknown]
  - Diarrhoea [Unknown]
